FAERS Safety Report 10392305 (Version 3)
Quarter: 2015Q4

REPORT INFORMATION
  Report Type: Spontaneous
  Country: PK (occurrence: PK)
  Receive Date: 20140819
  Receipt Date: 20151122
  Transmission Date: 20160304
  Serious: Yes (Death, Other)
  Sender: FDA-Public Use
  Company Number: PK-ROCHE-1451118

PATIENT
  Sex: Female
  Weight: 70 kg

DRUGS (2)
  1. LETROZOL [Suspect]
     Active Substance: LETROZOLE
     Indication: BREAST CANCER METASTATIC
     Route: 048
     Dates: start: 20131210
  2. XELODA [Suspect]
     Active Substance: CAPECITABINE
     Indication: BREAST CANCER METASTATIC
     Route: 048
     Dates: start: 20130217, end: 20131116

REACTIONS (2)
  - Hemiplegia [Unknown]
  - Cardio-respiratory arrest [Fatal]
